FAERS Safety Report 6583055-8 (Version None)
Quarter: 2010Q1

REPORT INFORMATION
  Report Type: 
  Country: None (occurrence: None)
  Receive Date: 20100216
  Receipt Date: 20100201
  Transmission Date: 20100710
  Serious: Yes (Other)
  Sender: FDA-Public Use
  Company Number: ES-PURDUE-USA-2010-0042246

PATIENT
  Age: 90 Year
  Sex: Female

DRUGS (11)
  1. TRAMADOL HCL [Suspect]
     Indication: PAIN
     Dosage: 100 MG, DAILY
     Route: 048
     Dates: start: 20090429, end: 20090508
  2. AMILORIDE HYDROCHLORIDE [Suspect]
     Indication: OEDEMA
     Dosage: 1 DF, DAILY
     Route: 048
     Dates: start: 20090331, end: 20090508
  3. CLEXANE [Suspect]
     Indication: FALL
     Dosage: 40 MG, DAILY
     Route: 058
     Dates: start: 20090423
  4. GLICLAZIDE [Concomitant]
     Indication: TYPE 2 DIABETES MELLITUS
     Dosage: UNK
     Dates: start: 20030627
  5. VALSARTAN [Concomitant]
     Indication: HYPERTENSION
     Dosage: UNK
     Dates: start: 20080818
  6. LANTUS OPTISET [Concomitant]
     Indication: TYPE 2 DIABETES MELLITUS
     Dosage: UNK
     Dates: start: 20050101
  7. OMEPRAZOLE [Concomitant]
     Indication: TYPE 2 DIABETES MELLITUS
     Dosage: 20 MG, UNK
     Dates: start: 20050101
  8. PLAVIX [Concomitant]
     Indication: CEREBROVASCULAR ACCIDENT
     Dosage: 75 MG, UNK
     Dates: start: 20040514
  9. SERTRALINE HCL [Concomitant]
     Indication: DEPRESSION
     Dosage: UNK
     Dates: start: 20070901
  10. SIMVASTATIN [Concomitant]
     Indication: HYPERLIPIDAEMIA
     Dosage: UNK
     Dates: start: 20030627
  11. TARDYFERON-FOL [Concomitant]
     Dosage: UNK
     Dates: start: 20050101

REACTIONS (3)
  - HYPERKALAEMIA [None]
  - NAUSEA [None]
  - VOMITING [None]
